FAERS Safety Report 7528924-7 (Version None)
Quarter: 2011Q2

REPORT INFORMATION
  Report Type: 
  Country: None (occurrence: None)
  Receive Date: 20110607
  Receipt Date: 20110525
  Transmission Date: 20111010
  Serious: Yes (Hospitalization, Other)
  Sender: FDA-Public Use
  Company Number: PHFR2011GB00520

PATIENT
  Sex: Male
  Weight: 83 kg

DRUGS (1)
  1. CLOZARIL [Suspect]
     Indication: SCHIZOPHRENIA
     Dosage: 300 MG, DAILY
     Route: 048
     Dates: start: 20050603

REACTIONS (3)
  - ABDOMINAL PAIN [None]
  - BODY TEMPERATURE INCREASED [None]
  - VIRAL INFECTION [None]
